FAERS Safety Report 11718956 (Version 1)
Quarter: 2015Q4

REPORT INFORMATION
  Report Type: Report from Study
  Country: GR (occurrence: GR)
  Receive Date: 20151109
  Receipt Date: 20151109
  Transmission Date: 20160304
  Serious: Yes (Hospitalization)
  Sender: FDA-Public Use
  Company Number: GR-ABBVIE-15P-066-1494721-00

PATIENT
  Sex: Female

DRUGS (2)
  1. DUODOPA [Suspect]
     Active Substance: CARBIDOPA\LEVODOPA
     Indication: PARKINSON^S DISEASE
     Dosage: MORNING DOSE: 9.8 ML;?CONTINUOUS RATE: 6.2 ML/H;?EXTRA DOSE: 3 ML
     Route: 050
     Dates: start: 20150505, end: 20151103
  2. APOMORPHINE [Concomitant]
     Active Substance: APOMORPHINE
     Indication: PARKINSON^S DISEASE
     Route: 058
     Dates: start: 20151103

REACTIONS (5)
  - Incorrect dose administered [Unknown]
  - Gastric perforation [Unknown]
  - Device dislocation [Unknown]
  - Device kink [Unknown]
  - Vomiting [Unknown]
